FAERS Safety Report 9280983 (Version 1)
Quarter: 2013Q2

REPORT INFORMATION
  Report Type: Report from Study
  Country: GB (occurrence: GB)
  Receive Date: 20130509
  Receipt Date: 20130509
  Transmission Date: 20140414
  Serious: Yes (Hospitalization)
  Sender: FDA-Public Use
  Company Number: GB-ABBOTT-12P-167-0963898-00

PATIENT
  Age: 56 Year
  Sex: Female
  Weight: 120 kg

DRUGS (27)
  1. HUMIRA 40 MG/ 0.8 ML PRE-FILLED SYRINGE [Suspect]
     Indication: PSORIASIS
     Route: 058
     Dates: start: 20120325, end: 20130207
  2. ATORVASTATIN [Concomitant]
     Indication: PRODUCT USED FOR UNKNOWN INDICATION
     Dates: start: 20110117
  3. FERROUS SULPHATE [Concomitant]
     Indication: PRODUCT USED FOR UNKNOWN INDICATION
     Dates: start: 20110117
  4. FOLIC ACID [Concomitant]
     Indication: PRODUCT USED FOR UNKNOWN INDICATION
     Dates: start: 20110117
  5. MEBEVERINE [Concomitant]
     Indication: PRODUCT USED FOR UNKNOWN INDICATION
     Dates: start: 20110117
  6. METFORMIN [Concomitant]
     Indication: PRODUCT USED FOR UNKNOWN INDICATION
     Dates: start: 20110117
  7. OMEPRAZOLE [Concomitant]
     Indication: PRODUCT USED FOR UNKNOWN INDICATION
     Dates: start: 20110117
  8. PIOGLITAZONE [Concomitant]
     Indication: PRODUCT USED FOR UNKNOWN INDICATION
     Dates: start: 20110117
  9. SALBUTAMOL [Concomitant]
     Indication: PRODUCT USED FOR UNKNOWN INDICATION
     Dates: start: 20110117
  10. SYMBICORT [Concomitant]
     Indication: PRODUCT USED FOR UNKNOWN INDICATION
     Dates: start: 20110117
  11. ASPIRIN [Concomitant]
     Indication: PRODUCT USED FOR UNKNOWN INDICATION
  12. FUROSEMIDE [Concomitant]
     Indication: PRODUCT USED FOR UNKNOWN INDICATION
  13. ISOSORBIDE MONONITRATE [Concomitant]
     Indication: PRODUCT USED FOR UNKNOWN INDICATION
  14. MONTELUKAST [Concomitant]
     Indication: PRODUCT USED FOR UNKNOWN INDICATION
  15. MORPHINE [Concomitant]
     Indication: PRODUCT USED FOR UNKNOWN INDICATION
  16. RAMIPRIL [Concomitant]
     Indication: PRODUCT USED FOR UNKNOWN INDICATION
  17. VERAPAMIL [Concomitant]
     Indication: PRODUCT USED FOR UNKNOWN INDICATION
  18. NICORANDIL [Concomitant]
     Indication: PRODUCT USED FOR UNKNOWN INDICATION
     Dates: start: 20110801
  19. GABAPENTIN [Concomitant]
     Indication: PRODUCT USED FOR UNKNOWN INDICATION
     Dates: start: 20120627
  20. DIAZEPAM [Concomitant]
     Indication: PRODUCT USED FOR UNKNOWN INDICATION
     Dates: start: 20120627
  21. SULPHASALAZINE [Concomitant]
     Indication: PRODUCT USED FOR UNKNOWN INDICATION
     Dates: start: 20110117
  22. DOMPERIDONE [Concomitant]
     Indication: PRODUCT USED FOR UNKNOWN INDICATION
     Dates: start: 20121215
  23. NOVORAPID [Concomitant]
     Indication: PRODUCT USED FOR UNKNOWN INDICATION
     Dates: start: 20130215
  24. FLUCLOXACILLIN [Concomitant]
     Indication: PRODUCT USED FOR UNKNOWN INDICATION
     Dates: start: 20130403, end: 20130410
  25. CLINDAMYCIN [Concomitant]
     Indication: PRODUCT USED FOR UNKNOWN INDICATION
     Dates: start: 20130320, end: 20130403
  26. TOPICAL DIATHRANOL [Concomitant]
     Indication: SKIN PLAQUE
     Route: 061
  27. SULPHASALAZINE [Concomitant]
     Indication: PRODUCT USED FOR UNKNOWN INDICATION

REACTIONS (9)
  - Chronic obstructive pulmonary disease [Unknown]
  - Chest pain [Recovered/Resolved]
  - Dyspnoea [Unknown]
  - Psoriasis [Recovered/Resolved]
  - Palpitations [Not Recovered/Not Resolved]
  - Psoriasis [Not Recovered/Not Resolved]
  - Chest pain [Recovered/Resolved]
  - Infected skin ulcer [Unknown]
  - Psoriasis [Unknown]
